FAERS Safety Report 7434525-1 (Version None)
Quarter: 2011Q2

REPORT INFORMATION
  Report Type: 
  Country: None (occurrence: None)
  Receive Date: 20110414
  Receipt Date: 20110331
  Transmission Date: 20111010
  Serious: Yes (Hospitalization)
  Sender: FDA-Public Use
  Company Number: 029387

PATIENT
  Sex: Male

DRUGS (12)
  1. ETIZOLAM [Concomitant]
  2. KETOPROFEN [Concomitant]
  3. LORNOXICAM [Concomitant]
  4. BUTENAFINE  HYDROCHLORIDE [Concomitant]
  5. OMEPRAZOLE [Concomitant]
  6. CIMZIA [Suspect]
     Indication: RHEUMATOID ARTHRITIS
     Dosage: (200 MG 1X/2 WEEKS SUBCUTANEOUS)
     Route: 058
     Dates: start: 20100531
  7. PREDNISOLONE [Suspect]
     Indication: RHEUMATOID ARTHRITIS
     Dosage: (5 MG  ORAL), (10 MG ORAL), (15 MG ORAL), (12.5 MG ORAL), (TAPERED  DOWN TO 5 MG)
     Route: 048
     Dates: start: 20110318, end: 20110301
  8. PREDNISOLONE [Suspect]
     Indication: RHEUMATOID ARTHRITIS
     Dosage: (5 MG  ORAL), (10 MG ORAL), (15 MG ORAL), (12.5 MG ORAL), (TAPERED  DOWN TO 5 MG)
     Route: 048
     Dates: start: 20100209, end: 20110302
  9. PREDNISOLONE [Suspect]
     Indication: RHEUMATOID ARTHRITIS
     Dosage: (5 MG  ORAL), (10 MG ORAL), (15 MG ORAL), (12.5 MG ORAL), (TAPERED  DOWN TO 5 MG)
     Route: 048
     Dates: start: 20110301
  10. PREDNISOLONE [Suspect]
     Indication: RHEUMATOID ARTHRITIS
     Dosage: (5 MG  ORAL), (10 MG ORAL), (15 MG ORAL), (12.5 MG ORAL), (TAPERED  DOWN TO 5 MG)
     Route: 048
     Dates: start: 20110312, end: 20110301
  11. PREDNISOLONE [Suspect]
     Indication: RHEUMATOID ARTHRITIS
     Dosage: (5 MG  ORAL), (10 MG ORAL), (15 MG ORAL), (12.5 MG ORAL), (TAPERED  DOWN TO 5 MG)
     Route: 048
     Dates: start: 20110303, end: 20110305
  12. FELBINAC [Concomitant]

REACTIONS (2)
  - GAIT DISTURBANCE [None]
  - PNEUMONIA [None]
